FAERS Safety Report 16961780 (Version 1)
Quarter: 2019Q4

REPORT INFORMATION
  Report Type: Spontaneous
  Country: GR (occurrence: GR)
  Receive Date: 20191025
  Receipt Date: 20191025
  Transmission Date: 20200122
  Serious: Yes (Death)
  Sender: FDA-Public Use
  Company Number: GR-PFIZER INC-2019457980

PATIENT
  Sex: Male

DRUGS (15)
  1. VINCRISTINE SULFATE. [Suspect]
     Active Substance: VINCRISTINE SULFATE
     Indication: NON-HODGKIN^S LYMPHOMA
     Dosage: CYCLIC (NHL, 6 CYCLES)
     Route: 042
     Dates: start: 20180704, end: 20181018
  2. CAELYX [Concomitant]
     Active Substance: DOXORUBICIN HYDROCHLORIDE
     Indication: NON-HODGKIN^S LYMPHOMA
     Dosage: CYCLIC (NHL, 2 CYCLES)
     Route: 042
     Dates: start: 20190215, end: 20190325
  3. GEMZAR [Concomitant]
     Active Substance: GEMCITABINE HYDROCHLORIDE
     Indication: NON-HODGKIN^S LYMPHOMA
     Dosage: CYCLIC (NHL, 2 CYCLES)
     Route: 042
     Dates: start: 20190215, end: 20190325
  4. ETOPOSIDE. [Concomitant]
     Active Substance: ETOPOSIDE
     Indication: NON-HODGKIN^S LYMPHOMA
     Dosage: CYCLIC (6 CYCLES)
     Route: 065
     Dates: start: 20181213, end: 20190114
  5. CISPLATIN. [Concomitant]
     Active Substance: CISPLATIN
     Indication: NON-HODGKIN^S LYMPHOMA
     Dosage: CYCLIC (NHL, 2 CYCLES 6 CYCLES)
     Route: 042
     Dates: start: 20181213, end: 20190110
  6. ADRIABLASTINA [Suspect]
     Active Substance: DOXORUBICIN
     Indication: NON-HODGKIN^S LYMPHOMA
     Dosage: CYCLIC (NHL, 6 CYCLES)
     Route: 042
     Dates: start: 20180704, end: 20181018
  7. PREDNISOLONE. [Suspect]
     Active Substance: PREDNISOLONE
     Indication: NON-HODGKIN^S LYMPHOMA
     Route: 065
     Dates: start: 20180704, end: 20181018
  8. MABTHERA [Suspect]
     Active Substance: RITUXIMAB
     Indication: NON-HODGKIN^S LYMPHOMA
     Dosage: UNK
     Route: 042
     Dates: start: 20180704, end: 20180704
  9. MABTHERA [Suspect]
     Active Substance: RITUXIMAB
     Dosage: 25JUL2018 TO 18OCT2018 (5 CYCLES), 13DEC2018 TO 09JAN2019 (2 CYCLES), 15FEB2019 TO 25MAR2019
     Route: 058
     Dates: start: 20180725
  10. CYTARABINE. [Concomitant]
     Active Substance: CYTARABINE
     Indication: NON-HODGKIN^S LYMPHOMA
     Dosage: CYCLIC (6 CYCLES)
     Route: 065
     Dates: start: 20181213, end: 20190114
  11. METHYLPREDNISOLONE. [Concomitant]
     Active Substance: METHYLPREDNISOLONE
     Indication: NON-HODGKIN^S LYMPHOMA
     Dosage: CYCLIC (6 CYCLES)
     Route: 065
     Dates: start: 20181213, end: 20190114
  12. POLATUZUMAB VEDOTIN. [Concomitant]
     Active Substance: POLATUZUMAB VEDOTIN
  13. ENDOXAN [CYCLOPHOSPHAMIDE] [Suspect]
     Active Substance: CYCLOPHOSPHAMIDE
     Indication: NON-HODGKIN^S LYMPHOMA
     Dosage: CYCLIC (NHL, 6 CYCLES)
     Route: 042
     Dates: start: 20180704, end: 20181018
  14. NAVELBINE [Concomitant]
     Active Substance: VINORELBINE TARTRATE
     Indication: NON-HODGKIN^S LYMPHOMA
     Dosage: CYCLIC (NHL, 2 CYCLES)
     Route: 042
     Dates: start: 20190215, end: 20190325
  15. BENDAMUSTINE [Concomitant]
     Active Substance: BENDAMUSTINE
     Indication: NON-HODGKIN^S LYMPHOMA
     Route: 065
     Dates: start: 20190506, end: 20190603

REACTIONS (2)
  - Neoplasm progression [Fatal]
  - Sepsis [Fatal]
